FAERS Safety Report 25223846 (Version 1)
Quarter: 2025Q2

REPORT INFORMATION
  Report Type: Report from Study
  Country: CA (occurrence: CA)
  Receive Date: 20250422
  Receipt Date: 20250422
  Transmission Date: 20250717
  Serious: Yes (Hospitalization)
  Sender: ALEXION PHARMACEUTICALS
  Company Number: CA-AstraZeneca-CH-00850045A

PATIENT

DRUGS (5)
  1. BENRALIZUMAB [Suspect]
     Active Substance: BENRALIZUMAB
     Indication: Asthma
  2. COMBIVENT RESPIMAT [Concomitant]
     Active Substance: ALBUTEROL SULFATE\IPRATROPIUM BROMIDE
     Route: 065
  3. OLODATEROL HYDROCHLORIDE\TIOTROPIUM BROMIDE MONOHYDRATE [Concomitant]
     Active Substance: OLODATEROL HYDROCHLORIDE\TIOTROPIUM BROMIDE MONOHYDRATE
     Route: 065
  4. VENTOLIN [Concomitant]
     Active Substance: ALBUTEROL SULFATE
     Route: 065
  5. ALVESCO [Concomitant]
     Active Substance: CICLESONIDE
     Route: 065

REACTIONS (3)
  - Decubitus ulcer [Unknown]
  - Osteomyelitis [Unknown]
  - Sepsis [Unknown]
